FAERS Safety Report 6082309-1 (Version None)
Quarter: 2009Q1

REPORT INFORMATION
  Report Type: 
  Country: None (occurrence: None)
  Receive Date: 20090123
  Receipt Date: 20081001
  Transmission Date: 20090719
  Serious: Yes (Other)
  Sender: FDA-Public Use
  Company Number: 588959

PATIENT
  Age: 62 Year
  Sex: Female

DRUGS (1)
  1. VESANOID [Suspect]
     Indication: DRUG USE FOR UNKNOWN INDICATION
     Dates: start: 20080915, end: 20080929

REACTIONS (3)
  - BLOOD TRIGLYCERIDES INCREASED [None]
  - PULMONARY OEDEMA [None]
  - RESPIRATORY DISTRESS [None]
